FAERS Safety Report 18937858 (Version 1)
Quarter: 2021Q1

REPORT INFORMATION
  Report Type: Spontaneous
  Country: US (occurrence: US)
  Receive Date: 20210224
  Receipt Date: 20210224
  Transmission Date: 20210420
  Serious: No
  Sender: FDA-Public Use
  Company Number: None

PATIENT
  Age: 43 Year
  Sex: Female

DRUGS (13)
  1. ALBUTEROL AER [Concomitant]
     Active Substance: ALBUTEROL
  2. ALPRAZOLAM. [Concomitant]
     Active Substance: ALPRAZOLAM
  3. HUMIRA [Suspect]
     Active Substance: ADALIMUMAB
     Indication: SPONDYLOARTHROPATHY
     Route: 058
     Dates: start: 20200519
  4. APAP/CODEINE [Concomitant]
     Active Substance: ACETAMINOPHEN\CODEINE PHOSPHATE
  5. CYCLOBENZAPR [Concomitant]
     Active Substance: CYCLOBENZAPRINE
  6. ESTRADIOL. [Concomitant]
     Active Substance: ESTRADIOL
  7. METOPROL SUC ER [Concomitant]
     Active Substance: METOPROLOL SUCCINATE
  8. PREGABALIN. [Concomitant]
     Active Substance: PREGABALIN
  9. IBUPROFEN. [Concomitant]
     Active Substance: IBUPROFEN
  10. PANTOPRAZOLE [Concomitant]
     Active Substance: PANTOPRAZOLE
  11. PROMETHAZINE [Concomitant]
     Active Substance: PROMETHAZINE HYDROCHLORIDE
  12. BUDESONIDE. [Concomitant]
     Active Substance: BUDESONIDE
  13. DICLOFEN POT [Concomitant]

REACTIONS (1)
  - Therapeutic nerve ablation [None]

NARRATIVE: CASE EVENT DATE: 20210105
